FAERS Safety Report 24854199 (Version 2)
Quarter: 2025Q1

REPORT INFORMATION
  Report Type: Spontaneous
  Country: FR (occurrence: FR)
  Receive Date: 20250117
  Receipt Date: 20250130
  Transmission Date: 20250408
  Serious: Yes (Other)
  Sender: AVERITAS
  Company Number: FR-GRUNENTHAL-2025-100532

PATIENT
  Age: 56 Year
  Sex: Female

DRUGS (6)
  1. QUTENZA [Interacting]
     Active Substance: CAPSAICIN
     Indication: Neuralgia
     Route: 003
     Dates: start: 20240626, end: 20240626
  2. QUTENZA [Interacting]
     Active Substance: CAPSAICIN
     Indication: Allodynia
     Route: 003
  3. QUTENZA [Interacting]
     Active Substance: CAPSAICIN
     Route: 003
  4. QUTENZA [Interacting]
     Active Substance: CAPSAICIN
     Route: 003
  5. LIDOCAINE [Interacting]
     Active Substance: LIDOCAINE
     Indication: Neuralgia
     Route: 061
     Dates: start: 20240626
  6. LIDOCAINE [Interacting]
     Active Substance: LIDOCAINE
     Indication: Allodynia

REACTIONS (4)
  - Application site erythema [Recovered/Resolved]
  - Drug interaction [Unknown]
  - Application site erythema [Unknown]
  - Off label use [Unknown]

NARRATIVE: CASE EVENT DATE: 20240626
